FAERS Safety Report 12591750 (Version 1)
Quarter: 2016Q3

REPORT INFORMATION
  Report Type: Spontaneous
  Country: US (occurrence: None)
  Receive Date: 20160725
  Receipt Date: 20160725
  Transmission Date: 20161109
  Serious: Yes (Life-Threatening, Hospitalization, Disabling, Other)
  Sender: FDA-Public Use
  Company Number: None

PATIENT
  Age: 47 Year
  Sex: Female
  Weight: 54.43 kg

DRUGS (2)
  1. DOXORUBICIN [Suspect]
     Active Substance: DOXORUBICIN
     Indication: BREAST CANCER
     Dosage: EVERY 2 WEEKS X4 INTO A VEIN
     Route: 042
     Dates: start: 20150423, end: 20150605
  2. CYCLOPHOSPHAMIDE. [Suspect]
     Active Substance: CYCLOPHOSPHAMIDE

REACTIONS (4)
  - Paraesthesia [None]
  - Anxiety [None]
  - Pain [None]
  - Muscular weakness [None]

NARRATIVE: CASE EVENT DATE: 20150423
